FAERS Safety Report 8910615 (Version 2)
Quarter: 2012Q4

REPORT INFORMATION
  Report Type: 
  Country: JP (occurrence: JP)
  Receive Date: 20121114
  Receipt Date: 20121128
  Transmission Date: 20130627
  Serious: Yes (Hospitalization)
  Sender: FDA-Public Use
  Company Number: JP-GLAXOSMITHKLINE-B0844091A

PATIENT
  Age: 28 Year
  Sex: Female
  Weight: 59 kg

DRUGS (4)
  1. ARIXTRA [Suspect]
     Indication: THROMBOSIS PROPHYLAXIS
     Dosage: 2.5MG Per day
     Route: 058
     Dates: start: 20120120, end: 20120123
  2. LOBU [Concomitant]
     Indication: ANALGESIC THERAPY
     Dosage: 60MG Three times per day
     Route: 048
     Dates: start: 20120117, end: 20120126
  3. SEFTAC [Concomitant]
     Indication: ANALGESIC THERAPY
     Dosage: 50MG Three times per day
     Route: 048
     Dates: start: 20120117, end: 20120126
  4. ADALAT-CR [Concomitant]
     Indication: GESTATIONAL HYPERTENSION
     Dosage: 20MG Twice per day
     Route: 048
     Dates: start: 20120117, end: 20120202

REACTIONS (1)
  - Abdominal wall haematoma [Recovering/Resolving]
